FAERS Safety Report 5050497-1 (Version None)
Quarter: 2006Q3

REPORT INFORMATION
  Report Type: 
  Country: None (occurrence: None)
  Receive Date: 20060713
  Receipt Date: 20060705
  Transmission Date: 20061208
  Serious: Yes (Other)
  Sender: FDA-Public Use
  Company Number: US-ROCHE-454422

PATIENT
  Age: 44 Year
  Sex: Female

DRUGS (2)
  1. PEGASYS [Suspect]
     Route: 058
     Dates: start: 20060412
  2. COPEGUS [Suspect]
     Route: 048
     Dates: start: 20060412

REACTIONS (1)
  - PULMONARY OEDEMA [None]
